FAERS Safety Report 5460980-2 (Version None)
Quarter: 2007Q3

REPORT INFORMATION
  Report Type: 
  Country: None (occurrence: None)
  Receive Date: 20070822
  Receipt Date: 20070215
  Transmission Date: 20080115
  Serious: Yes (Other)
  Sender: FDA-Public Use
  Company Number: 200713210

PATIENT
  Age: 65 Year
  Sex: Male
  Weight: 88.5 kg

DRUGS (4)
  1. NORVASC [Suspect]
     Indication: CHILLBLAINS
     Dosage: 10 MG (10 MG, 1 IN 1 D)
     Dates: start: 20010101
  2. PLETAL [Concomitant]
  3. NEXIUM [Concomitant]
  4. ZOCOR [Concomitant]

REACTIONS (2)
  - DIPLOPIA [None]
  - HEADACHE [None]
